FAERS Safety Report 13455969 (Version 1)
Quarter: 2017Q2

REPORT INFORMATION
  Report Type: Spontaneous
  Country: US (occurrence: US)
  Receive Date: 20170419
  Receipt Date: 20170419
  Transmission Date: 20170830
  Serious: No
  Sender: FDA-Public Use
  Company Number: US-BAYER-2017-075094

PATIENT
  Age: 33 Year
  Sex: Female
  Weight: 66.22 kg

DRUGS (1)
  1. GADAVIST [Suspect]
     Active Substance: GADOBUTROL
     Dosage: 7.5 ML, ONCE(6CC )
     Route: 042
     Dates: start: 20170418, end: 20170418

REACTIONS (1)
  - Urticaria [None]
